FAERS Safety Report 9393663 (Version 1)
Quarter: 2013Q3

REPORT INFORMATION
  Report Type: Spontaneous
  Country: JP (occurrence: JP)
  Receive Date: 20130710
  Receipt Date: 20130710
  Transmission Date: 20140515
  Serious: Yes (Other)
  Sender: FDA-Public Use
  Company Number: JP-GLAXOSMITHKLINE-B0905690A

PATIENT
  Age: 79 Year
  Sex: Male

DRUGS (2)
  1. ZOVIRAX [Suspect]
     Indication: PAIN
     Route: 042
  2. LIMARMONE [Concomitant]
     Route: 048

REACTIONS (2)
  - Dermatitis exfoliative [Not Recovered/Not Resolved]
  - Pruritus [Unknown]
